FAERS Safety Report 7395224-8 (Version None)
Quarter: 2011Q2

REPORT INFORMATION
  Report Type: 
  Country: None (occurrence: None)
  Receive Date: 20110405
  Receipt Date: 20110301
  Transmission Date: 20111010
  Serious: Yes (Other)
  Sender: FDA-Public Use
  Company Number: US-BAYER-200940986NA

PATIENT
  Sex: Male
  Weight: 90 kg

DRUGS (17)
  1. TRASYLOL [Suspect]
     Indication: AORTIC VALVE REPAIR
  2. TRASYLOL [Suspect]
     Indication: VASCULAR GRAFT
  3. FENOLDOPAM [Concomitant]
     Dosage: UNK
     Route: 042
     Dates: start: 20070308
  4. FENTANYL [Concomitant]
     Dosage: UNK
     Route: 042
     Dates: start: 20070308
  5. VERSED [Concomitant]
     Dosage: UNK
     Route: 042
     Dates: start: 20070308
  6. AMIODARONE HCL [Concomitant]
     Dosage: UNK
     Route: 042
     Dates: start: 20070308
  7. RED BLOOD CELLS, CONCENTRATED [Concomitant]
     Dosage: 7 U, UNK
     Dates: start: 20070308
  8. PLATELETS [Concomitant]
     Dosage: 2 U, UNK
     Dates: start: 20070308
  9. EPINEPHRINE [Concomitant]
     Dosage: UNK
     Route: 042
     Dates: start: 20070308
  10. UNCODEABLE ^UNCLASSIFIABLE^ [Concomitant]
     Dosage: UNK
     Route: 042
     Dates: start: 20070308
  11. FRESH FROZEN PLASMA [Concomitant]
     Dosage: 8 U, UNK
     Dates: start: 20070308
  12. TRASYLOL [Suspect]
     Indication: AORTIC DISSECTION RUPTURE
     Dosage: 50 ML EVERY 30 MINUTES (19 DOSES)
     Route: 042
     Dates: start: 20070308
  13. PROTAMINE SULFATE [Concomitant]
     Dosage: UNK
     Route: 042
     Dates: start: 20070308
  14. MILRINONE [Concomitant]
     Dosage: UNK
     Route: 042
     Dates: start: 20070308
  15. ISOFLURANE [Concomitant]
     Dosage: UNK
     Dates: start: 20070308
  16. TRASYLOL [Suspect]
     Indication: ARTERIAL BYPASS OPERATION
  17. LEVOPHED [Concomitant]
     Dosage: UNK
     Route: 042
     Dates: start: 20070308

REACTIONS (11)
  - UNEVALUABLE EVENT [None]
  - ANXIETY [None]
  - MULTI-ORGAN FAILURE [None]
  - RENAL INJURY [None]
  - RENAL FAILURE [None]
  - INJURY [None]
  - FEAR [None]
  - PAIN [None]
  - DEPRESSION [None]
  - ANHEDONIA [None]
  - DISABILITY [None]
